FAERS Safety Report 9773218 (Version 6)
Quarter: 2015Q3

REPORT INFORMATION
  Report Type: Spontaneous
  Country: CA (occurrence: CA)
  Receive Date: 20131219
  Receipt Date: 20150928
  Transmission Date: 20151125
  Serious: Yes (Other)
  Sender: FDA-Public Use
  Company Number: CA-GLAXOSMITHKLINE-A1053322A

PATIENT
  Age: 65 Year
  Sex: Female
  Weight: 68 kg

DRUGS (1)
  1. ADVAIR DISKUS [Suspect]
     Active Substance: FLUTICASONE PROPIONATE\SALMETEROL XINAFOATE
     Indication: CHRONIC OBSTRUCTIVE PULMONARY DISEASE
     Dosage: 1 PUFF(S), BID
     Route: 055
     Dates: start: 2003

REACTIONS (18)
  - Muscular weakness [Unknown]
  - Hypersensitivity [Unknown]
  - Pneumonia [Recovered/Resolved]
  - Rheumatoid arthritis [Unknown]
  - Fear [Recovered/Resolved]
  - Productive cough [Recovered/Resolved]
  - Oropharyngeal pain [Not Recovered/Not Resolved]
  - Arthritis [Recovering/Resolving]
  - Musculoskeletal discomfort [Recovering/Resolving]
  - Gait disturbance [Unknown]
  - Local swelling [Not Recovered/Not Resolved]
  - Bronchitis [Recovered/Resolved]
  - Cyst [Unknown]
  - Arthralgia [Not Recovered/Not Resolved]
  - Lung infection [Unknown]
  - Dizziness postural [Not Recovered/Not Resolved]
  - Pulmonary congestion [Recovered/Resolved]
  - Joint effusion [Unknown]

NARRATIVE: CASE EVENT DATE: 2010
